FAERS Safety Report 15771844 (Version 7)
Quarter: 2019Q4

REPORT INFORMATION
  Report Type: Spontaneous
  Country: JP (occurrence: JP)
  Receive Date: 20181228
  Receipt Date: 20191001
  Transmission Date: 20200122
  Serious: Yes (Hospitalization, Other)
  Sender: FDA-Public Use
  Company Number: JP-LUNDBECK-DKLU2058702

PATIENT
  Age: 5 Month
  Sex: Male
  Weight: 6 kg

DRUGS (22)
  1. E KEPPRA [Concomitant]
     Active Substance: LEVETIRACETAM
     Indication: INFANTILE SPASMS
     Route: 065
     Dates: start: 20181105
  2. ZINC. [Concomitant]
     Active Substance: ZINC
     Indication: PRODUCT USED FOR UNKNOWN INDICATION
     Route: 065
  3. SABRIL [Suspect]
     Active Substance: VIGABATRIN
     Indication: INFANTILE SPASMS
     Dosage: AFTER BREAKFAST
     Route: 048
     Dates: start: 20181022, end: 20181214
  4. SABRIL [Suspect]
     Active Substance: VIGABATRIN
     Dosage: AFTER BREAKFAST
     Route: 048
     Dates: start: 20180907, end: 20180918
  5. FERROMIA [Concomitant]
     Active Substance: SODIUM FERROUS CITRATE
     Indication: PRODUCT USED FOR UNKNOWN INDICATION
     Route: 065
  6. MAGMITT [Concomitant]
     Active Substance: MAGNESIUM OXIDE
     Indication: PRODUCT USED FOR UNKNOWN INDICATION
     Route: 065
  7. SATOSALBE [Concomitant]
     Active Substance: ZINC OXIDE
     Indication: PRODUCT USED FOR UNKNOWN INDICATION
     Route: 065
  8. MEPTIN [Concomitant]
     Active Substance: PROCATEROL HYDROCHLORIDE
     Indication: PRODUCT USED FOR UNKNOWN INDICATION
     Route: 065
  9. SABRIL [Suspect]
     Active Substance: VIGABATRIN
     Dosage: AFTER SUPPER
     Route: 048
     Dates: start: 20180919, end: 20181021
  10. L CARTIN FF [Concomitant]
     Active Substance: LEVOCARNITINE
     Indication: PRODUCT USED FOR UNKNOWN INDICATION
     Route: 065
  11. HOKUNALIN [Concomitant]
     Active Substance: TULOBUTEROL
     Indication: PRODUCT USED FOR UNKNOWN INDICATION
     Route: 065
  12. AZUNOL NO. 1 [Concomitant]
     Indication: PRODUCT USED FOR UNKNOWN INDICATION
     Route: 065
  13. PANVITAN BABY [Concomitant]
     Indication: PRODUCT USED FOR UNKNOWN INDICATION
     Route: 065
  14. DEPAKENE [Concomitant]
     Active Substance: VALPROIC ACID
     Indication: INFANTILE SPASMS
     Route: 065
     Dates: start: 20181221
  15. ELENTAL-P [Concomitant]
     Active Substance: AMINO ACIDS\CARBOHYDRATES\MINERALS\SOYBEAN OIL\VITAMINS
     Indication: PRODUCT USED FOR UNKNOWN INDICATION
     Route: 065
  16. SABRIL [Suspect]
     Active Substance: VIGABATRIN
     Dosage: AFTER SUPPER
     Route: 048
     Dates: start: 20181022, end: 20181214
  17. SABRIL [Suspect]
     Active Substance: VIGABATRIN
     Dosage: AFTER BREAKFAST
     Route: 048
     Dates: start: 20180919, end: 20181021
  18. CORTROSYN Z [Suspect]
     Active Substance: COSYNTROPIN
     Indication: INFANTILE SPASMS
     Route: 030
     Dates: start: 20181126, end: 20181203
  19. GASCON [Concomitant]
     Active Substance: DIMETHICONE
     Indication: PRODUCT USED FOR UNKNOWN INDICATION
     Route: 065
  20. ISOTONIC SODIUM CHLORIDE SOLUTION [Concomitant]
     Active Substance: SODIUM CHLORIDE
     Indication: PRODUCT USED FOR UNKNOWN INDICATION
     Route: 065
  21. SABRIL [Suspect]
     Active Substance: VIGABATRIN
     Dosage: AFTER SUPPER
     Route: 048
     Dates: start: 20180907, end: 20180918
  22. CORTROSYN Z [Suspect]
     Active Substance: COSYNTROPIN
     Route: 030
     Dates: start: 20180919, end: 20181013

REACTIONS (3)
  - Magnetic resonance imaging abnormal [Recovered/Resolved]
  - Pneumonia aspiration [Recovered/Resolved]
  - Encephalopathy [Recovering/Resolving]

NARRATIVE: CASE EVENT DATE: 20181203
